FAERS Safety Report 8979324 (Version 2)
Quarter: 2014Q2

REPORT INFORMATION
  Report Type: Report from Study
  Country: AT (occurrence: AT)
  Receive Date: 20121221
  Receipt Date: 20131028
  Transmission Date: 20141212
  Serious: Yes (Hospitalization, Other)
  Sender: FDA-Public Use
  Company Number: AT-PFIZER INC-AT-WYE-H09849609

PATIENT
  Age: 59 Year
  Sex: Male
  Weight: 70 kg

DRUGS (41)
  1. SIROLIMUS [Suspect]
     Indication: PROPHYLAXIS AGAINST TRANSPLANT REJECTION
     Dosage: 9 MG, 1X/DAY
     Route: 048
     Dates: start: 20031011, end: 20031016
  2. SIROLIMUS [Suspect]
     Dosage: 1 MG, 1X/DAY
     Route: 048
     Dates: start: 20031019, end: 20040208
  3. SIROLIMUS [Suspect]
     Dosage: 1 MG, ALTERNATE DAY
     Route: 048
     Dates: start: 20040209, end: 20040222
  4. SIROLIMUS [Suspect]
     Dosage: 1 MG, 1X/DAY
     Route: 048
     Dates: start: 20040223, end: 20040511
  5. SIROLIMUS [Suspect]
     Dosage: 1 MG, 1X/DAY
     Route: 048
     Dates: start: 20040513, end: 20040531
  6. SIROLIMUS [Suspect]
     Dosage: 1 MG, 1X/DAY
     Route: 048
     Dates: start: 20040601, end: 20040704
  7. SIROLIMUS [Suspect]
     Dosage: 1 MG, 1X/DAY
     Route: 048
     Dates: start: 20040705
  8. METHYLPREDNISOLONE SODIUM SUCCINATE [Suspect]
     Indication: PROPHYLAXIS AGAINST TRANSPLANT REJECTION
     Dosage: 500 MG, SINGLE
     Route: 042
     Dates: start: 20031011, end: 20031011
  9. METHYLPREDNISOLONE SODIUM SUCCINATE [Suspect]
     Dosage: 250 MG, UNK
     Route: 042
     Dates: start: 20031011, end: 20031011
  10. METHYLPREDNISOLONE SODIUM SUCCINATE [Suspect]
     Dosage: 125 MG, SINGLE
     Route: 042
     Dates: start: 20031012, end: 20031012
  11. METHYLPREDNISOLONE SODIUM SUCCINATE [Suspect]
     Dosage: 750 MG, 2X/DAY
     Route: 048
     Dates: start: 20031019
  12. MYCOPHENOLATE MOFETIL [Suspect]
     Indication: PROPHYLAXIS AGAINST TRANSPLANT REJECTION
     Dosage: 500 MG, 1X/DAY
     Route: 048
     Dates: start: 20031011, end: 20031011
  13. MYCOPHENOLATE MOFETIL [Suspect]
     Dosage: 50 MG, 2X/DAY
     Route: 048
     Dates: start: 20031012, end: 20031012
  14. MYCOPHENOLATE MOFETIL [Suspect]
     Dosage: 1000 MG, 2X/DAY
     Route: 048
     Dates: start: 20031013, end: 20031014
  15. MYCOPHENOLATE MOFETIL [Suspect]
     Dosage: 1000 MG, 1X/DAY
     Route: 048
     Dates: start: 20031015, end: 20031016
  16. MYCOPHENOLATE MOFETIL [Suspect]
     Dosage: 500 MG, 1X/DAY
     Route: 048
     Dates: start: 20031018, end: 20031019
  17. MYCOPHENOLATE MOFETIL [Suspect]
     Dosage: 1000 MG, 2X/DAY
     Route: 048
     Dates: start: 20031020, end: 20031116
  18. MYCOPHENOLATE MOFETIL [Suspect]
     Dosage: 2000 MG, 2X/DAY
     Route: 048
     Dates: start: 20031117, end: 20031123
  19. MYCOPHENOLATE MOFETIL [Suspect]
     Dosage: 1000 MG, 2X/DAY
     Route: 048
     Dates: start: 20031124, end: 20031208
  20. MYCOPHENOLATE MOFETIL [Suspect]
     Dosage: 2000 MG, 2X/DAY
     Route: 048
     Dates: start: 20031209, end: 20040104
  21. MYCOPHENOLATE MOFETIL [Suspect]
     Dosage: 1000 MG, 2X/DAY
     Route: 048
     Dates: start: 20040105, end: 20040208
  22. MYCOPHENOLATE MOFETIL [Suspect]
     Dosage: 2000 MG, 2X/DAY
     Route: 048
     Dates: start: 20040209, end: 20040223
  23. MYCOPHENOLATE MOFETIL [Suspect]
     Dosage: 1000 MG, 2X/DAY
     Route: 048
     Dates: start: 20040524
  24. DACLIZUMAB [Suspect]
     Indication: PROPHYLAXIS AGAINST TRANSPLANT REJECTION
     Dosage: 150 MG, SINGLE
     Route: 042
     Dates: start: 20031011, end: 20031011
  25. DACLIZUMAB [Suspect]
     Dosage: 75 MG, ONCE EVERY TWO WEEKS
     Route: 042
     Dates: start: 20031025, end: 20031209
  26. PREDNISOLON [Suspect]
     Indication: PROPHYLAXIS AGAINST TRANSPLANT REJECTION
     Dosage: 500 MG, 2X/DAY
     Route: 048
     Dates: start: 20031013
  27. THROMBO ASS [Concomitant]
     Dosage: 100 MG, 1X/DAY
     Route: 065
     Dates: start: 200310
  28. NORVASC [Concomitant]
     Dosage: 5 MG, 1X/DAY
     Route: 048
  29. NORVASC [Concomitant]
     Dosage: 5 MG, 2X/DAY
     Route: 048
  30. NORVASC [Concomitant]
     Dosage: 5 MG, 2X/DAY
     Route: 048
  31. DILATREND [Concomitant]
     Dosage: UNK
     Route: 048
     Dates: start: 20031011
  32. NOVOMIX [Concomitant]
     Dosage: UNK
     Route: 065
     Dates: start: 200311
  33. LABETALOL HYDROCHLORIDE [Concomitant]
     Dosage: 200 MG, UNK
     Route: 048
     Dates: start: 20031012
  34. PANTOPRAZOLE [Concomitant]
     Dosage: UNK
     Route: 048
     Dates: start: 200310
  35. SULFAMETHOXAZOLE, TRIMETHOPRIM [Concomitant]
     Dosage: 1 G, UNK
     Route: 048
     Dates: start: 20031013, end: 20040705
  36. COTRIDIN [Concomitant]
     Dosage: 1 DF, UNK
     Route: 048
  37. INSULIN ASPART [Concomitant]
     Route: 048
  38. FLUCLOXACILLIN [Concomitant]
     Dosage: 2 G, UNK
     Route: 048
  39. HEPATITIS B IMMUNE GLOBULIN [Concomitant]
     Dosage: 10 ML, UNK
     Route: 042
  40. METOPROLOL [Concomitant]
     Dosage: 95 MG, UNK
  41. PENICILLIN NOS [Concomitant]
     Dosage: 6 G, UNK
     Route: 042

REACTIONS (2)
  - Renal cell carcinoma [Recovered/Resolved]
  - Diabetes mellitus [Recovered/Resolved]
